FAERS Safety Report 6747109-5 (Version None)
Quarter: 2010Q2

REPORT INFORMATION
  Report Type: 
  Country: None (occurrence: None)
  Receive Date: 20100528
  Receipt Date: 20100517
  Transmission Date: 20101027
  Serious: Yes (Hospitalization)
  Sender: FDA-Public Use
  Company Number: US-PFIZER INC-2010062231

PATIENT
  Sex: Female

DRUGS (9)
  1. ADRIAMYCIN PFS [Suspect]
     Indication: BREAST CANCER
     Dosage: 104 MG, UNK
     Route: 042
     Dates: start: 20100408, end: 20100408
  2. CYCLOPHOSPHAMIDE [Suspect]
     Indication: BREAST CANCER
     Dosage: 1000 MG, UNK
     Route: 042
     Dates: start: 20100408, end: 20100408
  3. AMBIEN [Concomitant]
     Dosage: UNK
     Dates: start: 20100210
  4. ASPIRIN [Concomitant]
     Dosage: UNK
     Dates: start: 20060310
  5. ATACAND HCT [Concomitant]
     Dosage: UNK
     Dates: start: 20060310
  6. CALCIUM [Concomitant]
     Dosage: UNK
     Dates: start: 20030310
  7. CARVEDILOL [Concomitant]
     Dosage: UNK
     Dates: start: 20050310
  8. CRESTOR [Concomitant]
     Dosage: UNK
     Dates: start: 20050310
  9. METFORMIN HYDROCHLORIDE [Concomitant]
     Dosage: UNK
     Dates: start: 20060310

REACTIONS (1)
  - RENAL FAILURE ACUTE [None]
